FAERS Safety Report 8818541 (Version 1)
Quarter: 2012Q4

REPORT INFORMATION
  Report Type: 
  Country: JP (occurrence: JP)
  Receive Date: 20121001
  Receipt Date: 20121001
  Transmission Date: 20130627
  Serious: Yes (Other)
  Sender: FDA-Public Use
  Company Number: JP-TEVA-360877ISR

PATIENT
  Age: 87 Year
  Sex: Male

DRUGS (3)
  1. ENALAPRIL MALEATE [Suspect]
  2. DONEPEZIL [Concomitant]
  3. ERYTHROMYCIN [Concomitant]

REACTIONS (1)
  - Inappropriate antidiuretic hormone secretion [Unknown]
